FAERS Safety Report 7404878-9 (Version None)
Quarter: 2011Q2

REPORT INFORMATION
  Report Type: 
  Country: None (occurrence: None)
  Receive Date: 20110411
  Receipt Date: 20110401
  Transmission Date: 20111010
  Serious: Yes (Life-Threatening, Hospitalization, Other)
  Sender: FDA-Public Use
  Company Number: US-JNJFOC-20110401563

PATIENT
  Sex: Female
  Weight: 48.99 kg

DRUGS (2)
  1. DOXIL [Suspect]
     Indication: OVARIAN CANCER
     Route: 042
  2. PROCHLORPERAZINE TAB [Concomitant]
     Indication: NAUSEA
     Dosage: G-TUBE
     Route: 065

REACTIONS (10)
  - MULTI-ORGAN FAILURE [None]
  - CATHETER SITE INFECTION [None]
  - ABASIA [None]
  - PAIN [None]
  - INSOMNIA [None]
  - VOMITING [None]
  - AGITATION [None]
  - GASTRIC DISORDER [None]
  - ADVERSE EVENT [None]
  - MALAISE [None]
